FAERS Safety Report 12410689 (Version 2)
Quarter: 2016Q2

REPORT INFORMATION
  Report Type: Spontaneous
  Country: JP (occurrence: JP)
  Receive Date: 20160527
  Receipt Date: 20160617
  Transmission Date: 20160815
  Serious: Yes (Death)
  Sender: FDA-Public Use
  Company Number: JP-ELI_LILLY_AND_COMPANY-JP201605008612

PATIENT
  Age: 67 Year
  Sex: Female
  Weight: 39 kg

DRUGS (9)
  1. FUROSEMIDE. [Concomitant]
     Active Substance: FUROSEMIDE
     Indication: ASCITES
     Dosage: 20 MG, QD
     Route: 048
     Dates: start: 20160413, end: 20160522
  2. SPIRONOLACTONE. [Concomitant]
     Active Substance: SPIRONOLACTONE
     Indication: ASCITES
     Dosage: 25 MG, QD
     Route: 048
     Dates: start: 20160413, end: 20160522
  3. CYRAMZA [Suspect]
     Active Substance: RAMUCIRUMAB
     Indication: ADENOCARCINOMA GASTRIC
     Dosage: 240 MG, OTHER
     Route: 042
     Dates: start: 20151217, end: 20160117
  4. CYRAMZA [Suspect]
     Active Substance: RAMUCIRUMAB
     Dosage: 220 MG, OTHER
     Route: 042
     Dates: start: 20160125, end: 20160221
  5. PACLITAXEL. [Concomitant]
     Active Substance: PACLITAXEL
     Dosage: 70 MG, OTHER
     Route: 042
     Dates: start: 20160125, end: 20160221
  6. PARIET [Concomitant]
     Active Substance: RABEPRAZOLE SODIUM
     Indication: PROPHYLAXIS
     Dosage: 10 MG, QD
     Route: 048
     Dates: end: 20160522
  7. NORVASC [Concomitant]
     Active Substance: AMLODIPINE BESYLATE
     Indication: HYPERTENSION
     Dosage: 5 MG, QD
     Route: 048
     Dates: end: 20160522
  8. PACLITAXEL. [Concomitant]
     Active Substance: PACLITAXEL
     Indication: ADENOCARCINOMA GASTRIC
     Dosage: 75 MG, OTHER
     Route: 042
     Dates: start: 20151217, end: 20160117
  9. MICARDIS [Concomitant]
     Active Substance: TELMISARTAN
     Indication: HYPERTENSION
     Dosage: 40 MG, QD
     Route: 048
     Dates: end: 20160522

REACTIONS (3)
  - Malignant neoplasm progression [Fatal]
  - Decreased appetite [Not Recovered/Not Resolved]
  - Proteinuria [Not Recovered/Not Resolved]

NARRATIVE: CASE EVENT DATE: 20160309
